FAERS Safety Report 9124987 (Version 1)
Quarter: 2013Q1

REPORT INFORMATION
  Report Type: Spontaneous
  Country: US (occurrence: US)
  Receive Date: 20130227
  Receipt Date: 20130227
  Transmission Date: 20140127
  Serious: No
  Sender: FDA-Public Use
  Company Number: US-009507513-1302USA010667

PATIENT
  Sex: 0

DRUGS (1)
  1. BCG LIVE [Suspect]
     Indication: BLADDER CANCER
     Dosage: 50 MG, UNK
     Route: 043

REACTIONS (3)
  - Wrong drug administered [Unknown]
  - Off label use [Unknown]
  - No adverse event [Unknown]
